FAERS Safety Report 15763936 (Version 1)
Quarter: 2018Q4

REPORT INFORMATION
  Report Type: Spontaneous
  Country: FR (occurrence: FR)
  Receive Date: 20181227
  Receipt Date: 20181227
  Transmission Date: 20190205
  Serious: Yes (Death)
  Sender: FDA-Public Use
  Company Number: FR-TEVA-2018-FR-992388

PATIENT
  Age: 77 Year
  Sex: Male
  Weight: 90 kg

DRUGS (12)
  1. RILMENIDINE [Concomitant]
     Active Substance: RILMENIDINE
  2. LERCAN 20 MG, COMPRIM? PELLICUL? [Concomitant]
     Active Substance: LERCANIDIPINE HYDROCHLORIDE
  3. NISISCO [Concomitant]
     Active Substance: HYDROCHLOROTHIAZIDE\VALSARTAN
  4. TAHOR [Concomitant]
     Active Substance: ATORVASTATIN CALCIUM
  5. INORIAL [Concomitant]
     Active Substance: BILASTINE
  6. DOLIPRANE [Concomitant]
     Active Substance: ACETAMINOPHEN
  7. KARDEGIC [Concomitant]
     Active Substance: ASPIRIN DL-LYSINE
  8. ALLOPURINOL. [Concomitant]
     Active Substance: ALLOPURINOL
  9. CISPLATINE [Suspect]
     Active Substance: CISPLATIN
     Indication: LUNG CANCER METASTATIC
     Route: 041
     Dates: start: 20181115, end: 20181115
  10. GAVISCON [Concomitant]
     Active Substance: ALUMINUM HYDROXIDE\MAGNESIUM CARBONATE
  11. RANIPLEX [Concomitant]
     Active Substance: RANITIDINE HYDROCHLORIDE
  12. VINORELBINE BASE [Suspect]
     Active Substance: VINORELBINE\VINORELBINE TARTRATE
     Indication: LUNG CANCER METASTATIC
     Route: 041
     Dates: start: 20181122, end: 20181122

REACTIONS (2)
  - Neutropenia [Fatal]
  - Septic shock [Fatal]

NARRATIVE: CASE EVENT DATE: 20181127
